FAERS Safety Report 8285608-8 (Version None)
Quarter: 2012Q2

REPORT INFORMATION
  Report Type: 
  Country: None (occurrence: None)
  Receive Date: 20120413
  Receipt Date: 20120123
  Transmission Date: 20120825
  Serious: No
  Sender: FDA-Public Use
  Company Number: US-ASTRAZENECA-2012SE05049

PATIENT
  Sex: Female

DRUGS (3)
  1. DAMOAT [Concomitant]
  2. HIDROXINE [Concomitant]
  3. NEXIUM [Suspect]
     Indication: GASTROOESOPHAGEAL REFLUX DISEASE
     Route: 048

REACTIONS (7)
  - ABDOMINAL PAIN UPPER [None]
  - ORAL DISCOMFORT [None]
  - DRUG DOSE OMISSION [None]
  - NAUSEA [None]
  - DYSPEPSIA [None]
  - THROAT IRRITATION [None]
  - OFF LABEL USE [None]
